FAERS Safety Report 17505483 (Version 1)
Quarter: 2020Q1

REPORT INFORMATION
  Report Type: Spontaneous
  Country: US (occurrence: US)
  Receive Date: 20200306
  Receipt Date: 20200306
  Transmission Date: 20200409
  Serious: Yes (Death, Other)
  Sender: FDA-Public Use
  Company Number: US-TEVA-2020-US-1193403

PATIENT
  Age: 2 Year
  Sex: Male

DRUGS (4)
  1. NALOXONE [Suspect]
     Active Substance: NALOXONE
     Indication: TOXICITY TO VARIOUS AGENTS
     Route: 065
  2. NALOXONE [Suspect]
     Active Substance: NALOXONE
     Indication: OVERDOSE
  3. EPINEPHRINE. [Suspect]
     Active Substance: EPINEPHRINE
     Indication: CARDIAC ARREST
     Route: 065
  4. METHADONE [Suspect]
     Active Substance: METHADONE HYDROCHLORIDE
     Dosage: OPEN METHADONE BOTTLE AND 20 MISSING PILLS
     Route: 048

REACTIONS (10)
  - Toxicity to various agents [Fatal]
  - Pupil fixed [Unknown]
  - Pallor [Unknown]
  - Lethargy [Unknown]
  - Cardiac arrest [Unknown]
  - Mydriasis [Unknown]
  - Overdose [Unknown]
  - Pupillary reflex impaired [Unknown]
  - Corneal reflex decreased [Unknown]
  - Drug ineffective [Unknown]
